FAERS Safety Report 12574065 (Version 1)
Quarter: 2016Q3

REPORT INFORMATION
  Report Type: Spontaneous
  Country: US (occurrence: None)
  Receive Date: 20160719
  Receipt Date: 20160719
  Transmission Date: 20161109
  Serious: Yes (Hospitalization)
  Sender: FDA-Public Use
  Company Number: None

PATIENT
  Age: 85 Year
  Sex: Female
  Weight: 98.43 kg

DRUGS (8)
  1. CALCIUM+VITAMIN D [Concomitant]
     Active Substance: CALCIUM\VITAMIN D
  2. ISOSORBIDE. [Concomitant]
     Active Substance: ISOSORBIDE
  3. METOPROLOL SUCCINATE. [Concomitant]
     Active Substance: METOPROLOL SUCCINATE
  4. ASPIRIN EC [Concomitant]
     Active Substance: ASPIRIN
  5. ELIQUIS [Concomitant]
     Active Substance: APIXABAN
  6. LEVOTHYROXINE. [Concomitant]
     Active Substance: LEVOTHYROXINE
  7. SENNA-DOCUSATE [Concomitant]
  8. ATORVASTATIN 40 MG APOTEX [Suspect]
     Active Substance: ATORVASTATIN
     Indication: CORONARY ARTERY DISEASE
     Route: 048
     Dates: start: 20160606, end: 20160622

REACTIONS (3)
  - Incorrect dose administered [None]
  - Drug prescribing error [None]
  - Drug-induced liver injury [None]

NARRATIVE: CASE EVENT DATE: 20160621
